FAERS Safety Report 8997643 (Version 3)
Quarter: 2013Q3

REPORT INFORMATION
  Report Type: Spontaneous
  Country: US (occurrence: US)
  Receive Date: 20130104
  Receipt Date: 20130710
  Transmission Date: 20140515
  Serious: Yes (Hospitalization, Disabling)
  Sender: FDA-Public Use
  Company Number: US-009507513-1301USA000371

PATIENT
  Sex: Female
  Weight: 63.49 kg

DRUGS (1)
  1. NUVARING [Suspect]
     Indication: CONTRACEPTION
     Dosage: UNK, QM
     Route: 067
     Dates: start: 20071014, end: 20080121

REACTIONS (6)
  - Vena cava filter insertion [Unknown]
  - Deep vein thrombosis [Not Recovered/Not Resolved]
  - Attention deficit/hyperactivity disorder [Not Recovered/Not Resolved]
  - Bursitis [Unknown]
  - Anxiety [Not Recovered/Not Resolved]
  - Decubitus ulcer [Unknown]
